FAERS Safety Report 9647697 (Version 2)
Quarter: 2013Q4

REPORT INFORMATION
  Report Type: Spontaneous
  Country: IT (occurrence: IT)
  Receive Date: 20131028
  Receipt Date: 20131028
  Transmission Date: 20140711
  Serious: Yes (Other)
  Sender: FDA-Public Use
  Company Number: IT-CELGENEUS-083-20785-13094038

PATIENT
  Age: 65 Year
  Sex: Male
  Weight: 95 kg

DRUGS (6)
  1. THALIDOMIDE [Suspect]
     Indication: PLASMA CELL MYELOMA
     Dosage: 100 MILLIGRAM
     Route: 048
     Dates: start: 20121009
  2. THALIDOMIDE [Suspect]
     Dosage: 100 MILLIGRAM
     Route: 048
     Dates: end: 20121118
  3. VELCADE [Concomitant]
     Indication: PLASMA CELL MYELOMA
     Dosage: 1.3 MILLIGRAM/SQ. METER
     Route: 058
  4. DECADRON [Concomitant]
     Indication: PLASMA CELL MYELOMA
     Route: 041
  5. CLEXANE [Concomitant]
     Indication: PROPHYLAXIS
     Dosage: 8000 IU (INTERNATIONAL UNIT)
     Route: 065
  6. CLEXANE [Concomitant]
     Dosage: 16000 IU (INTERNATIONAL UNIT)
     Route: 065

REACTIONS (1)
  - Heat oedema [Recovered/Resolved]
